FAERS Safety Report 17278170 (Version 2)
Quarter: 2020Q1

REPORT INFORMATION
  Report Type: Report from Study
  Country: CA (occurrence: CA)
  Receive Date: 20200116
  Receipt Date: 20200221
  Transmission Date: 20200409
  Serious: Yes (Other)
  Sender: FDA-Public Use
  Company Number: CA-JNJFOC-20200116725

PATIENT
  Age: 76 Year
  Sex: Male
  Weight: 88.9 kg

DRUGS (1)
  1. STELARA [Suspect]
     Active Substance: USTEKINUMAB
     Indication: PSORIATIC ARTHROPATHY
     Dosage: 45 MG/0.5ML
     Route: 058
     Dates: start: 20190308, end: 20191209

REACTIONS (1)
  - Bile duct cancer stage IV [Not Recovered/Not Resolved]

NARRATIVE: CASE EVENT DATE: 201912
